FAERS Safety Report 8845591 (Version 1)
Quarter: 2012Q4

REPORT INFORMATION
  Report Type: 
  Country: TR (occurrence: TR)
  Receive Date: 20121017
  Receipt Date: 20121017
  Transmission Date: 20130627
  Serious: Yes (Other)
  Sender: FDA-Public Use
  Company Number: TR-BAXTER-2012BAX020265

PATIENT
  Age: 42 Year
  Sex: Female

DRUGS (4)
  1. ENDOXAN [Suspect]
     Indication: BURKITT^S LYMPHOMA
  2. ADRIAMYCIN [Suspect]
     Indication: BURKITT^S LYMPHOMA
  3. VINCRISTINE [Suspect]
     Indication: BURKITT^S LYMPHOMA
  4. RITUXIMAB [Suspect]
     Indication: BURKITT^S LYMPHOMA

REACTIONS (1)
  - Gastric perforation [Recovered/Resolved]
